FAERS Safety Report 14753863 (Version 1)
Quarter: 2018Q2

REPORT INFORMATION
  Report Type: Spontaneous
  Country: CH (occurrence: CH)
  Receive Date: 20180412
  Receipt Date: 20180412
  Transmission Date: 20180711
  Serious: Yes (Other)
  Sender: FDA-Public Use
  Company Number: CH-MYLANLABS-2018M1023629

PATIENT
  Age: 8 Month

DRUGS (1)
  1. TRAMADOL. [Suspect]
     Active Substance: TRAMADOL
     Indication: PAIN
     Route: 048

REACTIONS (7)
  - Accidental overdose [Recovered/Resolved]
  - Heart rate increased [Recovered/Resolved]
  - Agitation [Recovered/Resolved]
  - Apnoeic attack [Recovered/Resolved]
  - Respiratory depression [Recovered/Resolved]
  - Sedation [Recovered/Resolved]
  - Generalised tonic-clonic seizure [Recovered/Resolved]
